FAERS Safety Report 11398646 (Version 1)
Quarter: 2015Q3

REPORT INFORMATION
  Report Type: Spontaneous
  Country: GB (occurrence: GB)
  Receive Date: 20150820
  Receipt Date: 20150820
  Transmission Date: 20151125
  Serious: Yes (Hospitalization, Other)
  Sender: FDA-Public Use
  Company Number: PHHY2013GB146077

PATIENT
  Sex: Male

DRUGS (2)
  1. PRUCALOPRIDE [Suspect]
     Active Substance: PRUCALOPRIDE
     Indication: PRODUCT USED FOR UNKNOWN INDICATION
     Route: 065
  2. STALEVO [Suspect]
     Active Substance: CARBIDOPA\ENTACAPONE\LEVODOPA
     Indication: PARKINSON^S DISEASE
     Dosage: 5 DF, QD
     Route: 048
     Dates: end: 2014

REACTIONS (16)
  - Activities of daily living impaired [Unknown]
  - Therapeutic response changed [Unknown]
  - Product colour issue [Unknown]
  - Product quality issue [Unknown]
  - Immobile [Unknown]
  - Suspected counterfeit product [Unknown]
  - Chromaturia [Unknown]
  - Drug dispensing error [Unknown]
  - Psychotic disorder [Recovering/Resolving]
  - Inappropriate schedule of drug administration [Unknown]
  - On and off phenomenon [Unknown]
  - Hyperkinesia [Unknown]
  - Parkinson^s disease [Unknown]
  - Incorrect dose administered [Unknown]
  - Mental disorder [Unknown]
  - Drug ineffective [Unknown]
